FAERS Safety Report 24613377 (Version 3)
Quarter: 2025Q2

REPORT INFORMATION
  Report Type: Spontaneous
  Country: JP (occurrence: JP)
  Receive Date: 20241113
  Receipt Date: 20250422
  Transmission Date: 20250717
  Serious: Yes (Hospitalization, Other)
  Sender: GILEAD
  Company Number: JP-GILEAD-2024-0693378

PATIENT
  Age: 52 Year
  Sex: Male

DRUGS (4)
  1. YESCARTA [Suspect]
     Active Substance: AXICABTAGENE CILOLEUCEL
     Indication: Diffuse large B-cell lymphoma recurrent
     Route: 065
     Dates: start: 202306, end: 202306
  2. FLUCONAZOLE [Concomitant]
     Active Substance: FLUCONAZOLE
  3. VALACYCLOVIR HYDROCHLORIDE [Concomitant]
     Active Substance: VALACYCLOVIR HYDROCHLORIDE
  4. ATOVAQUONE [Concomitant]
     Active Substance: ATOVAQUONE

REACTIONS (6)
  - Bronchopulmonary aspergillosis [Recovering/Resolving]
  - Diabetes insipidus [Recovered/Resolved]
  - Hypogammaglobulinaemia [Unknown]
  - Cytopenia [Unknown]
  - Immunodeficiency [Unknown]
  - CD4 lymphocytes decreased [Unknown]

NARRATIVE: CASE EVENT DATE: 20230701
